FAERS Safety Report 6299504-9 (Version None)
Quarter: 2009Q3

REPORT INFORMATION
  Report Type: 
  Country: None (occurrence: None)
  Receive Date: 20090806
  Receipt Date: 20090805
  Transmission Date: 20100115
  Serious: Yes (Hospitalization, Disabling)
  Sender: FDA-Public Use
  Company Number: D0061418A

PATIENT
  Sex: Female

DRUGS (5)
  1. HYCAMTIN [Suspect]
     Indication: CERVIX CARCINOMA
     Dosage: .75MGM2 PER DAY
     Route: 042
  2. CISPLATIN [Suspect]
     Indication: CERVIX CARCINOMA
     Dosage: 70MG PER DAY
     Route: 042
  3. EMEND [Concomitant]
     Indication: VOMITING
     Dosage: 125MG PER DAY
     Route: 048
  4. FORTECORTIN [Concomitant]
     Dosage: 12MG PER DAY
     Route: 042
  5. ONDANSETRON [Concomitant]
     Dosage: 8MG PER DAY
     Route: 042

REACTIONS (4)
  - CEREBROVASCULAR ACCIDENT [None]
  - HEMIPARESIS [None]
  - HYPERTENSIVE CRISIS [None]
  - ISCHAEMIC STROKE [None]
